FAERS Safety Report 8167909-7 (Version None)
Quarter: 2012Q1

REPORT INFORMATION
  Report Type: 
  Country: None (occurrence: None)
  Receive Date: 20120227
  Receipt Date: 20120216
  Transmission Date: 20120608
  Serious: Yes (Hospitalization)
  Sender: FDA-Public Use
  Company Number: US-GLAXOSMITHKLINE-A0886481A

PATIENT
  Age: 54 Year
  Sex: Male

DRUGS (1)
  1. AVANDIA [Suspect]
     Indication: DIABETES MELLITUS
     Dosage: 8MG PER DAY
     Route: 048
     Dates: end: 20060601

REACTIONS (6)
  - CARDIAC ASSISTANCE DEVICE USER [None]
  - IMPLANTABLE DEFIBRILLATOR INSERTION [None]
  - ISCHAEMIC CARDIOMYOPATHY [None]
  - CORONARY ARTERY BYPASS [None]
  - ARRHYTHMIA [None]
  - CARDIAC FAILURE CONGESTIVE [None]
